FAERS Safety Report 7043076-8 (Version None)
Quarter: 2010Q3

REPORT INFORMATION
  Report Type: 
  Country: None (occurrence: None)
  Receive Date: 20100929
  Receipt Date: 20100708
  Transmission Date: 20110219
  Serious: No
  Sender: FDA-Public Use
  Company Number: US-WYE-H16115810

PATIENT
  Age: 41 Year
  Sex: Female
  Weight: 59.02 kg

DRUGS (2)
  1. PRISTIQ [Suspect]
     Indication: DEPRESSION
     Dosage: 50 MG 1X PER 1 DAY, ORAL
     Route: 048
     Dates: start: 20100604, end: 20100601
  2. DEPO-PROVERA SUSPENSION/INJ [Concomitant]

REACTIONS (4)
  - ASTHENIA [None]
  - DISTURBANCE IN ATTENTION [None]
  - FEELING ABNORMAL [None]
  - PANIC ATTACK [None]
